FAERS Safety Report 4339954-0 (Version None)
Quarter: 2004Q2

REPORT INFORMATION
  Report Type: 
  Country: None (occurrence: None)
  Receive Date: 20040414
  Receipt Date: 20040401
  Transmission Date: 20050107
  Serious: Yes (Other)
  Sender: FDA-Public Use
  Company Number: 2004022432

PATIENT
  Sex: Female
  Weight: 77.1115 kg

DRUGS (7)
  1. NEURONTIN [Suspect]
     Indication: PAIN
     Dosage: ORAL
     Route: 048
  2. PROPACET (DEXTROPROPOXYPHENE NAPSILATE, PARACETAMOL) [Concomitant]
  3. ESTRATEST H.S. [Concomitant]
  4. PAROXETINE HCL [Concomitant]
  5. NORTRIPTYLINE HCL [Concomitant]
  6. BUSPIRONE HCL [Concomitant]
  7. CLONAZEPAM [Concomitant]

REACTIONS (7)
  - ASTIGMATISM [None]
  - DYSARTHRIA [None]
  - ENDOMETRIOSIS [None]
  - FATIGUE [None]
  - LIBIDO DECREASED [None]
  - MUSCLE TWITCHING [None]
  - VISUAL DISTURBANCE [None]
